FAERS Safety Report 9645956 (Version 1)
Quarter: 2013Q4

REPORT INFORMATION
  Report Type: Spontaneous
  Country: US (occurrence: US)
  Receive Date: 20131025
  Receipt Date: 20131025
  Transmission Date: 20140711
  Serious: Yes (Other)
  Sender: FDA-Public Use
  Company Number: US-CELGENEUS-163-20785-13103623

PATIENT
  Sex: 0

DRUGS (7)
  1. THALOMID [Suspect]
     Indication: NEOPLASM MALIGNANT
     Dosage: 50 MILLIGRAM
     Route: 048
  2. THALOMID [Suspect]
     Dosage: 50-1000MG
     Route: 048
  3. CYCLOPHOSPHAMIDE [Suspect]
     Indication: NEOPLASM MALIGNANT
     Dosage: 2.5 MILLIGRAM/KILOGRAM
     Route: 048
  4. CELECOXIB [Suspect]
     Indication: NEOPLASM MALIGNANT
     Dosage: 200 MILLIGRAM
     Route: 048
  5. CELECOXIB [Suspect]
     Dosage: 200-400MG
     Route: 048
  6. ETOPOSIDE [Suspect]
     Indication: NEOPLASM MALIGNANT
     Dosage: 50 MILLIGRAM/SQ. METER
     Route: 048
  7. FENOFIBRATE [Suspect]
     Indication: NEOPLASM MALIGNANT
     Dosage: 90 MILLIGRAM/SQ. METER
     Route: 048

REACTIONS (22)
  - Convulsion [Unknown]
  - Speech disorder [Unknown]
  - Blood alkaline phosphatase increased [Unknown]
  - Hypophosphataemia [Unknown]
  - Decreased appetite [Unknown]
  - Ataxia [Unknown]
  - Headache [Unknown]
  - Cough [Unknown]
  - Abdominal pain [Unknown]
  - Diarrhoea [Unknown]
  - Nausea [Unknown]
  - Anaemia [Unknown]
  - Peripheral motor neuropathy [Unknown]
  - Somnolence [Unknown]
  - Dyspnoea [Unknown]
  - Fatigue [Unknown]
  - Thrombosis [Unknown]
  - Off label use [Unknown]
  - Alopecia [Unknown]
  - Abdominal distension [Unknown]
  - Disease progression [Unknown]
  - Constipation [Unknown]
